FAERS Safety Report 8410570-4 (Version None)
Quarter: 2012Q2

REPORT INFORMATION
  Report Type: 
  Country: None (occurrence: None)
  Receive Date: 20120605
  Receipt Date: 20120529
  Transmission Date: 20120825
  Serious: Yes (Hospitalization, Other)
  Sender: FDA-Public Use
  Company Number: US-BAYER-2012-003040

PATIENT
  Age: 47 Year
  Sex: Female
  Weight: 73.016 kg

DRUGS (24)
  1. YASMIN [Suspect]
     Indication: HORMONE REPLACEMENT THERAPY
     Dosage: UNK
     Dates: start: 20020816, end: 20030801
  2. LEVOTHROID [Concomitant]
     Dosage: UNK
     Dates: start: 20080506, end: 20081207
  3. FEXOFENADINE [Concomitant]
     Dosage: 180 MG DAILY
     Dates: start: 20080710, end: 20081208
  4. YASMIN [Suspect]
     Dosage: UNK
     Dates: start: 20030815, end: 20080414
  5. YASMIN [Suspect]
     Dosage: UNK
     Dates: start: 20081224
  6. ASCORBIC ACID [Concomitant]
     Dosage: UNK
     Dates: start: 19970101
  7. FEXOFENADINE [Concomitant]
     Dosage: 180 MG DAILY
     Dates: start: 20071212, end: 20080111
  8. INDOMETHACIN [Concomitant]
     Indication: PAIN IN EXTREMITY
     Dosage: 75 MG, DAILY
     Dates: start: 20080110, end: 20080113
  9. INDOCIN [Concomitant]
     Dosage: UNK
  10. GABAPENTIN [Concomitant]
     Indication: PAIN
     Dosage: 300 MG, 2 TIMES DAILY
     Dates: start: 20060614, end: 20090401
  11. FEXOFENADINE [Concomitant]
     Dosage: 180 MG DAILY
     Dates: start: 20070615, end: 20070715
  12. FEXOFENADINE [Concomitant]
     Dosage: 180 MG DAILY
     Dates: start: 20081209, end: 20091029
  13. DARVOCET-N 50 [Concomitant]
     Dosage: UNK
  14. SYNTHROID [Concomitant]
     Indication: GOITRE
     Dosage: 100 MCG, DAILY
     Dates: start: 20060213, end: 20070301
  15. SYNTHROID [Concomitant]
     Dosage: 100 MCG, DAILY
     Dates: start: 20070611, end: 20080507
  16. FEXOFENADINE [Concomitant]
     Indication: PARANASAL SINUS HYPERSECRETION
     Dosage: 180 MG, DAILY
     Dates: start: 20061107, end: 20061207
  17. FEXOFENADINE [Concomitant]
     Dosage: 180 MG DAILY
     Dates: start: 20080324, end: 20080423
  18. SYNTHROID [Concomitant]
     Dosage: 100 MCG, DAILY
     Dates: start: 20090106, end: 20100123
  19. FEXOFENADINE [Concomitant]
     Dosage: 180 MG DAILY
     Dates: start: 20070202, end: 20070411
  20. YASMIN [Suspect]
     Dosage: UNK
     Dates: start: 20080325, end: 20080414
  21. LEVAQUIN [Concomitant]
     Indication: CELLULITIS
     Dosage: 500 MG, DAILY
     Dates: start: 20080117, end: 20080127
  22. GABAPENTIN [Concomitant]
     Dosage: 300 MG, 2 TIMES DAILY
     Dates: start: 20090518, end: 20100201
  23. CORTISONE ACETATE [Concomitant]
     Dosage: UNK
     Dates: start: 20081230
  24. CAVAPINLIN [Concomitant]
     Dosage: UNK

REACTIONS (11)
  - EMBOLISM ARTERIAL [None]
  - ANXIETY [None]
  - ABASIA [None]
  - EMOTIONAL DISTRESS [None]
  - MOBILITY DECREASED [None]
  - DEEP VEIN THROMBOSIS [None]
  - PAIN [None]
  - HYPOAESTHESIA [None]
  - DYSSTASIA [None]
  - GENERAL PHYSICAL HEALTH DETERIORATION [None]
  - PAIN IN EXTREMITY [None]
